FAERS Safety Report 24054607 (Version 1)
Quarter: 2024Q3

REPORT INFORMATION
  Report Type: Spontaneous
  Country: BR (occurrence: BR)
  Receive Date: 20240705
  Receipt Date: 20240705
  Transmission Date: 20241017
  Serious: Yes (Other)
  Sender: BAXTER
  Company Number: BR-BAXTER-2024BAX020718

PATIENT
  Age: 38 Year
  Sex: Female
  Weight: 63 kg

DRUGS (2)
  1. IRON [Suspect]
     Active Substance: IRON
     Indication: Anaemia
     Dosage: 2 AMPOULES DILUTED IN 250 ML OF 0.9% SODIUM CHLORIDE FOR 30 MINUTES
     Route: 042
  2. SODIUM CHLORIDE [Suspect]
     Active Substance: SODIUM CHLORIDE
     Indication: Medication dilution
     Dosage: 250 ML OF 0.9% SODIUM CHLORIDE USED TO DILUTE 2 AMPOULES OF SUCROFER FOR 30 MINUTES
     Route: 042

REACTIONS (2)
  - Erythema [Recovered/Resolved]
  - Pruritus [Recovered/Resolved]

NARRATIVE: CASE EVENT DATE: 20240617
